FAERS Safety Report 4438779-5 (Version None)
Quarter: 2004Q3

REPORT INFORMATION
  Report Type: 
  Country: None (occurrence: None)
  Receive Date: 20040901
  Receipt Date: 20040823
  Transmission Date: 20050211
  Serious: Yes (Disabling)
  Sender: FDA-Public Use
  Company Number: DK-JNJFOC-20040803688

PATIENT
  Age: 68 Year
  Sex: Female

DRUGS (5)
  1. REMICADE [Suspect]
     Indication: RHEUMATOID ARTHRITIS
     Route: 042
  2. IMUREL [Concomitant]
     Dosage: 2 TABLETS DAILY.
     Route: 049
  3. FOSAMAX [Concomitant]
     Dosage: 1 TABLET/WEEK.
     Route: 049
  4. CALCIUM TABLETS [Concomitant]
     Dosage: 1 TABLET TWICE/DAILY.
     Route: 049
  5. URSO FALK [Concomitant]
     Dosage: MORNING AND EVENING
     Route: 049

REACTIONS (12)
  - ARTHROPATHY [None]
  - CARCINOMA [None]
  - CONTUSION [None]
  - EAR PAIN [None]
  - JOINT CREPITATION [None]
  - MUSCLE CRAMP [None]
  - MUSCULAR WEAKNESS [None]
  - MUSCULOSKELETAL STIFFNESS [None]
  - OSTEOPOROSIS [None]
  - PERIPHERAL ISCHAEMIA [None]
  - POOR PERIPHERAL CIRCULATION [None]
  - VARICOSE VEIN [None]
